FAERS Safety Report 7031378-0 (Version None)
Quarter: 2010Q4

REPORT INFORMATION
  Report Type: 
  Country: None (occurrence: None)
  Receive Date: 20101006
  Receipt Date: 20101001
  Transmission Date: 20110411
  Serious: Yes (Other)
  Sender: FDA-Public Use
  Company Number: DE-CVT-100616

PATIENT

DRUGS (1)
  1. RANEXA [Suspect]
     Indication: CORONARY ARTERY DISEASE
     Dosage: 375 MG, QD
     Route: 048
     Dates: start: 20100904, end: 20100904

REACTIONS (1)
  - SYNCOPE [None]
